FAERS Safety Report 24615261 (Version 2)
Quarter: 2025Q2

REPORT INFORMATION
  Report Type: Spontaneous
  Country: US (occurrence: US)
  Receive Date: 20241113
  Receipt Date: 20250510
  Transmission Date: 20250717
  Serious: No
  Sender: SANOFI AVENTIS
  Company Number: US-SA-2024SA317201

PATIENT
  Age: 63 Year
  Sex: Male

DRUGS (8)
  1. SARCLISA [Suspect]
     Active Substance: ISATUXIMAB-IRFC
     Indication: Plasma cell myeloma
     Dosage: 1380 MG, QOW
     Route: 041
     Dates: start: 20210325, end: 20210325
  2. SARCLISA [Suspect]
     Active Substance: ISATUXIMAB-IRFC
     Dosage: 1400 MG, QOW
     Route: 041
     Dates: start: 20210406
  3. ACETAMINOPHEN [Concomitant]
     Active Substance: ACETAMINOPHEN
  4. OMEPRAZOLE [Concomitant]
     Active Substance: OMEPRAZOLE
  5. ACYCLOVIR [Concomitant]
     Active Substance: ACYCLOVIR
  6. ATORVASTATIN CALCIUM [Concomitant]
     Active Substance: ATORVASTATIN CALCIUM
  7. LISINOPRIL [Concomitant]
     Active Substance: LISINOPRIL
  8. METOPROLOL TARTRATE [Concomitant]
     Active Substance: METOPROLOL TARTRATE

REACTIONS (2)
  - Weight decreased [Not Recovered/Not Resolved]
  - Incorrect dose administered [Unknown]

NARRATIVE: CASE EVENT DATE: 20210406
